FAERS Safety Report 9834552 (Version 3)
Quarter: 2014Q2

REPORT INFORMATION
  Report Type: Spontaneous
  Country: US (occurrence: US)
  Receive Date: 20140122
  Receipt Date: 20140611
  Transmission Date: 20141212
  Serious: No
  Sender: FDA-Public Use
  Company Number: US-B.I. PHARMACEUTICALS,INC./RIDGEFIELD-2014-BI-01809BP

PATIENT
  Age: 78 Year
  Sex: Male
  Weight: 83 kg

DRUGS (19)
  1. SPIRIVA [Suspect]
     Indication: CHRONIC OBSTRUCTIVE PULMONARY DISEASE
     Dosage: 18 MCG
     Route: 055
     Dates: start: 20121212
  2. SPIRIVA [Suspect]
     Dosage: 18 MCG
     Route: 055
     Dates: start: 201403
  3. COUMADIN [Concomitant]
     Indication: AORTIC VALVE REPLACEMENT
     Dosage: 2 MG
     Route: 048
  4. GLIMEPIRIDE [Concomitant]
     Indication: DIABETES MELLITUS
     Dosage: 4 MG
     Route: 048
  5. PREVACID [Concomitant]
     Indication: DYSPEPSIA
     Dosage: 20 MG
     Route: 048
  6. ECOTRIN [Concomitant]
     Dosage: 81 MG
     Route: 048
  7. VENTOLIN [Concomitant]
     Indication: CHRONIC OBSTRUCTIVE PULMONARY DISEASE
     Route: 055
  8. LANTUS [Concomitant]
     Indication: DIABETES MELLITUS
     Dosage: 100 U
     Route: 058
  9. FUROSEMIDE [Concomitant]
     Dosage: 40 MG
     Route: 048
  10. KLOR-CON [Concomitant]
     Dosage: 10 RT
     Route: 048
  11. JANUMET XR [Concomitant]
     Indication: DIABETES MELLITUS
     Dosage: DOSE PER APPLICATION:50 MG / 1000 MG,DAILY DOSE:50 MG / 1000 MG
     Route: 048
  12. VITAMIN D [Concomitant]
     Dosage: 50000 U
     Route: 048
  13. FERROUS SULFATE [Concomitant]
     Dosage: 325 MG
     Route: 048
  14. VITAMIN C [Concomitant]
     Dosage: 750 MG
     Route: 048
  15. TYLENOL EXTRA STRENGTH [Concomitant]
     Route: 048
  16. METOPROLOL [Concomitant]
     Indication: HYPERTENSION
     Dosage: 100 MG
     Route: 048
  17. FLOMAX [Concomitant]
     Indication: PROSTATOMEGALY
     Dosage: 0.4 MG
     Route: 048
     Dates: start: 2011
  18. LIPITOR [Concomitant]
     Indication: BLOOD CHOLESTEROL INCREASED
     Dosage: 80 MG
     Route: 048
  19. ZESTRIL [Concomitant]
     Indication: HYPERTENSION
     Dosage: 40 MG
     Route: 048

REACTIONS (2)
  - Dry mouth [Not Recovered/Not Resolved]
  - Constipation [Not Recovered/Not Resolved]
